FAERS Safety Report 13428455 (Version 1)
Quarter: 2017Q2

REPORT INFORMATION
  Report Type: Spontaneous
  Country: FR (occurrence: FR)
  Receive Date: 20170411
  Receipt Date: 20170411
  Transmission Date: 20170830
  Serious: Yes (Other)
  Sender: FDA-Public Use
  Company Number: FR-B.I. PHARMACEUTICALS,INC./RIDGEFIELD-2017-BI-015895

PATIENT
  Sex: Female

DRUGS (1)
  1. GILOTRIF [Suspect]
     Active Substance: AFATINIB
     Indication: PRODUCT USED FOR UNKNOWN INDICATION
     Route: 048
     Dates: start: 201501, end: 201703

REACTIONS (7)
  - Malignant neoplasm progression [Not Recovered/Not Resolved]
  - Diarrhoea [Recovered/Resolved]
  - Folliculitis [Not Recovered/Not Resolved]
  - Drug resistance [Not Recovered/Not Resolved]
  - Onychoclasis [Not Recovered/Not Resolved]
  - Paronychia [Not Recovered/Not Resolved]
  - Alopecia [Not Recovered/Not Resolved]
